FAERS Safety Report 13767840 (Version 2)
Quarter: 2017Q3

REPORT INFORMATION
  Report Type: Spontaneous
  Country: US (occurrence: US)
  Receive Date: 20170719
  Receipt Date: 20170802
  Transmission Date: 20171127
  Serious: No
  Sender: FDA-Public Use
  Company Number: US-PFIZER INC-2017275493

PATIENT
  Age: 55 Year
  Sex: Female

DRUGS (2)
  1. FLECTOR [Suspect]
     Active Substance: DICLOFENAC EPOLAMINE
     Indication: PAIN
     Dosage: 1 DF, 2X/DAY
     Route: 062
     Dates: start: 20170622
  2. FLECTOR [Suspect]
     Active Substance: DICLOFENAC EPOLAMINE
     Dosage: UNK
     Route: 062

REACTIONS (3)
  - Product adhesion issue [Unknown]
  - Pruritus [Not Recovered/Not Resolved]
  - Poor quality drug administered [Unknown]

NARRATIVE: CASE EVENT DATE: 2017
